FAERS Safety Report 24045071 (Version 2)
Quarter: 2024Q3

REPORT INFORMATION
  Report Type: Spontaneous
  Country: AU (occurrence: AU)
  Receive Date: 20240703
  Receipt Date: 20240913
  Transmission Date: 20241016
  Serious: Yes (Other)
  Sender: ROCHE
  Company Number: AU-CHEPLA-2024007876

PATIENT
  Age: 48 Year
  Sex: Male

DRUGS (7)
  1. GANCICLOVIR [Suspect]
     Active Substance: GANCICLOVIR
     Indication: Product used for unknown indication
     Route: 065
  2. TOCILIZUMAB [Suspect]
     Active Substance: TOCILIZUMAB
     Indication: Product used for unknown indication
     Route: 065
  3. HYDROCORTISONE [Suspect]
     Active Substance: HYDROCORTISONE\HYDROCORTISONE ACETATE
     Indication: Product used for unknown indication
     Route: 065
  4. DEXAMETHASONE [Suspect]
     Active Substance: DEXAMETHASONE
     Indication: Product used for unknown indication
     Route: 065
  5. MEROPENEM [Concomitant]
     Active Substance: MEROPENEM
     Route: 065
  6. REMDESIVIR [Concomitant]
     Active Substance: REMDESIVIR
     Route: 065
  7. VANCOMYCIN [Concomitant]
     Active Substance: VANCOMYCIN
     Route: 065

REACTIONS (9)
  - Aspergillus infection [Unknown]
  - Bronchopleural fistula [Unknown]
  - Bronchopulmonary aspergillosis [Unknown]
  - Pulmonary haemorrhage [Unknown]
  - Enterococcal infection [Unknown]
  - Pneumonia cytomegaloviral [Unknown]
  - Pulmonary necrosis [Unknown]
  - Stenotrophomonas infection [Unknown]
  - Klebsiella infection [Unknown]
